FAERS Safety Report 24962904 (Version 1)
Quarter: 2025Q1

REPORT INFORMATION
  Report Type: Spontaneous
  Country: US (occurrence: US)
  Receive Date: 20250213
  Receipt Date: 20250213
  Transmission Date: 20250409
  Serious: No
  Sender: SANOFI AVENTIS
  Company Number: US-SA-2025SA041020

PATIENT
  Sex: Female

DRUGS (6)
  1. DUPIXENT [Suspect]
     Active Substance: DUPILUMAB
     Indication: Dermatitis atopic
     Dosage: 300MG QOW
     Route: 058
  2. AMITRIPTYLINE [Concomitant]
     Active Substance: AMITRIPTYLINE
  3. CALCIUM [Concomitant]
     Active Substance: CALCIUM
  4. IBUPROFEN [Concomitant]
     Active Substance: IBUPROFEN
  5. LEVETIRACETAM [Concomitant]
     Active Substance: LEVETIRACETAM
  6. VITAMIN D3 [Concomitant]
     Active Substance: CHOLECALCIFEROL

REACTIONS (3)
  - Musculoskeletal disorder [Unknown]
  - Peripheral swelling [Unknown]
  - Back pain [Unknown]
